FAERS Safety Report 15297727 (Version 1)
Quarter: 2018Q3

REPORT INFORMATION
  Report Type: Spontaneous
  Country: CH (occurrence: US)
  Receive Date: 20180820
  Receipt Date: 20180820
  Transmission Date: 20181010
  Serious: Yes (Death, Hospitalization)
  Sender: FDA-Public Use
  Company Number: CH-OPKO PHARMACEUTICALS, LLC-2018OPK00029

PATIENT

DRUGS (6)
  1. FUROSEMIDE. [Concomitant]
     Active Substance: FUROSEMIDE
  2. XARELTO [Concomitant]
     Active Substance: RIVAROXABAN
  3. RAYALDEE [Suspect]
     Active Substance: CALCIFEDIOL
     Dosage: UNK
     Dates: start: 2017, end: 2017
  4. SPIRONOLACTONE. [Concomitant]
     Active Substance: SPIRONOLACTONE
  5. VELTASSA [Suspect]
     Active Substance: PATIROMER
     Indication: HYPERKALAEMIA
     Dosage: 8.4 G, QD
     Dates: start: 20170725, end: 2017
  6. APAP [Concomitant]
     Active Substance: ACETAMINOPHEN

REACTIONS (3)
  - Renal impairment [Fatal]
  - Liver function test abnormal [Fatal]
  - Death [Fatal]

NARRATIVE: CASE EVENT DATE: 2017
